FAERS Safety Report 22249550 (Version 1)
Quarter: 2023Q2

REPORT INFORMATION
  Report Type: Spontaneous
  Country: US (occurrence: None)
  Receive Date: 20230421
  Receipt Date: 20230421
  Transmission Date: 20230722
  Serious: Yes (Hospitalization)
  Sender: FDA-Public Use
  Company Number: None

PATIENT
  Age: 52 Year
  Sex: Male

DRUGS (3)
  1. OPSUMIT [Suspect]
     Active Substance: MACITENTAN
     Indication: Pulmonary arterial hypertension
     Dosage: FREQUENCY : DAILY;?
     Route: 048
     Dates: start: 20161020
  2. SELEXIPAG [Concomitant]
  3. SILDENAFIL [Concomitant]

REACTIONS (4)
  - COVID-19 [None]
  - Respiratory failure [None]
  - Pneumonia [None]
  - Abdominal pain [None]

NARRATIVE: CASE EVENT DATE: 20230407
